FAERS Safety Report 11171322 (Version 1)
Quarter: 2015Q2

REPORT INFORMATION
  Report Type: Spontaneous
  Country: CA (occurrence: CA)
  Receive Date: 20150608
  Receipt Date: 20150608
  Transmission Date: 20150821
  Serious: Yes (Other)
  Sender: FDA-Public Use
  Company Number: CA-TEVA-568481USA

PATIENT
  Age: 0 Day
  Sex: Female
  Weight: 2.6 kg

DRUGS (1)
  1. TEVA-FENTANYL [Suspect]
     Active Substance: FENTANYL
     Indication: PRODUCT USED FOR UNKNOWN INDICATION
     Dosage: 37.5 MICROGRAM DAILY; 75MCG EVERY 2 DAYS
     Route: 064

REACTIONS (6)
  - Drug withdrawal syndrome neonatal [Recovered/Resolved]
  - Musculoskeletal stiffness [Unknown]
  - Neonatal respiratory distress syndrome [Unknown]
  - Feeding disorder neonatal [Unknown]
  - Irritability [Unknown]
  - Foetal exposure during pregnancy [Unknown]

NARRATIVE: CASE EVENT DATE: 20150112
